FAERS Safety Report 9755975 (Version 3)
Quarter: 2015Q4

REPORT INFORMATION
  Report Type: Spontaneous
  Country: CA (occurrence: CA)
  Receive Date: 20131213
  Receipt Date: 20151223
  Transmission Date: 20160305
  Serious: Yes (Hospitalization, Other)
  Sender: FDA-Public Use
  Company Number: CA-GLAXOSMITHKLINE-A1052546A

PATIENT
  Age: 71 Year
  Sex: Female
  Weight: 109.1 kg

DRUGS (2)
  1. WATER PILL [Concomitant]
     Active Substance: UNSPECIFIED INGREDIENT
     Indication: PRODUCT USED FOR UNKNOWN INDICATION
     Dosage: UNK
  2. ADVAIR HFA [Suspect]
     Active Substance: FLUTICASONE PROPIONATE\SALMETEROL XINAFOATE
     Indication: CHRONIC OBSTRUCTIVE PULMONARY DISEASE
     Dosage: 250/50 MCG
     Route: 055
     Dates: start: 2002

REACTIONS (10)
  - Fall [Unknown]
  - Bronchitis [Unknown]
  - Post-traumatic headache [Not Recovered/Not Resolved]
  - Contusion [Not Recovered/Not Resolved]
  - Head injury [Recovered/Resolved]
  - Cardiac failure congestive [Unknown]
  - Bladder cancer [Unknown]
  - Stress [Unknown]
  - Fatigue [Unknown]
  - Dyspnoea [Recovered/Resolved]

NARRATIVE: CASE EVENT DATE: 201311
